FAERS Safety Report 11263340 (Version 1)
Quarter: 2015Q3

REPORT INFORMATION
  Report Type: Spontaneous
  Country: SE (occurrence: SE)
  Receive Date: 20150712
  Receipt Date: 20150712
  Transmission Date: 20151125
  Serious: Yes (Hospitalization)
  Sender: FDA-Public Use
  Company Number: SE-JNJFOC-20150703147

PATIENT
  Age: 39 Year
  Sex: Female

DRUGS (4)
  1. TOPAMAX [Suspect]
     Active Substance: TOPIRAMATE
     Indication: PRODUCT USED FOR UNKNOWN INDICATION
     Dosage: 25 MG X 4 TABLETS
     Route: 065
     Dates: start: 20150619, end: 20150619
  2. TEGRETOL [Suspect]
     Active Substance: CARBAMAZEPINE
     Indication: PRODUCT USED FOR UNKNOWN INDICATION
     Dosage: 400 MG X 4 TABLETS
     Route: 065
     Dates: start: 20150619, end: 20150619
  3. CHLORINE [Suspect]
     Active Substance: CHLORINE
     Indication: PRODUCT USED FOR UNKNOWN INDICATION
     Dosage: HALF A GLASS
     Route: 065
  4. KEPPRA [Suspect]
     Active Substance: LEVETIRACETAM
     Indication: PRODUCT USED FOR UNKNOWN INDICATION
     Dosage: 500 MG X 12 TABLETS
     Route: 065
     Dates: start: 20150619, end: 20150619

REACTIONS (3)
  - Toxicity to various agents [Recovered/Resolved]
  - Intentional product misuse [Unknown]
  - Suicidal ideation [Unknown]

NARRATIVE: CASE EVENT DATE: 20150619
